FAERS Safety Report 6300651-3 (Version None)
Quarter: 2009Q3

REPORT INFORMATION
  Report Type: 
  Country: None (occurrence: None)
  Receive Date: 20090803
  Receipt Date: 20090727
  Transmission Date: 20100115
  Serious: Yes (Hospitalization)
  Sender: FDA-Public Use
  Company Number: 09FI002771

PATIENT
  Age: 76 Year
  Sex: Male

DRUGS (3)
  1. SIMVASTATIN [Suspect]
     Indication: MYOCARDIAL INFARCTION
     Dosage: 20-40 MG, QD, ORAL
     Route: 048
  2. REUMACON (DEMETHYL PODOPHYLLOTOXIN BENZYLIDENE GLUCOPYRANOSIDE) [Suspect]
     Indication: RHEUMATOID ARTHRITIS
     Dosage: 100-200 MG QD
  3. PREDNISOLONE ACETATE [Concomitant]

REACTIONS (8)
  - DENERVATION ATROPHY [None]
  - DRUG INTERACTION [None]
  - FALL [None]
  - GENERAL PHYSICAL HEALTH DETERIORATION [None]
  - MUSCLE CONTRACTIONS INVOLUNTARY [None]
  - MYOPATHY [None]
  - POLYNEUROPATHY [None]
  - RHABDOMYOLYSIS [None]
